FAERS Safety Report 9306981 (Version 2)
Quarter: 2013Q3

REPORT INFORMATION
  Report Type: Spontaneous
  Country: US (occurrence: US)
  Receive Date: 20130523
  Receipt Date: 20130814
  Transmission Date: 20140515
  Serious: Yes (Other)
  Sender: FDA-Public Use
  Company Number: US-ELI_LILLY_AND_COMPANY-US201305003639

PATIENT
  Sex: Male
  Weight: 83 kg

DRUGS (2)
  1. HUMATROPE [Suspect]
     Indication: DWARFISM
     Dosage: UNK, UNKNOWN
     Route: 058
     Dates: start: 200610
  2. HUMATROPE [Suspect]
     Indication: HYPOPITUITARISM

REACTIONS (1)
  - Skin cancer [Unknown]
